FAERS Safety Report 17871351 (Version 1)
Quarter: 2020Q2

REPORT INFORMATION
  Report Type: Report from Study
  Country: US (occurrence: US)
  Receive Date: 20200608
  Receipt Date: 20200608
  Transmission Date: 20200714
  Serious: Yes (Hospitalization, Other)
  Sender: FDA-Public Use
  Company Number: US-PFIZER INC-2020008818

PATIENT
  Age: 69 Year
  Sex: Female

DRUGS (15)
  1. IBRANCE [Suspect]
     Active Substance: PALBOCICLIB
     Indication: BREAST CANCER METASTATIC
     Dosage: 125 MG, CYCLIC (DAILY, DAY 1-21 OF 28 DAY CYCLE)
     Route: 048
     Dates: start: 20191226
  2. COREG [Concomitant]
     Active Substance: CARVEDILOL
     Dosage: 12.5 MG, 2X/DAY(TAKE 12.5 MG BY MOUTH TWICE A DAY WITH BREAKFAST AND DINNER)
     Route: 048
  3. SENOKOT [Concomitant]
     Active Substance: SENNOSIDES
     Dosage: 8.6 MG, DAILY
     Route: 048
  4. MS CONTIN [Concomitant]
     Active Substance: MORPHINE SULFATE
     Dosage: 15 MG, 2X/DAY(TAKE 1 TABLET {15 MG TOTAL) BY MOUTH EVERY 12 HOURS)
     Route: 048
  5. ALBUTEROL SULFATE. [Concomitant]
     Active Substance: ALBUTEROL SULFATE
     Indication: COUGH
  6. PREDNISONE. [Concomitant]
     Active Substance: PREDNISONE
     Dosage: 5 MG, 1X/DAY
     Route: 048
  7. MORPHINE [Concomitant]
     Active Substance: MORPHINE
     Dosage: UNK
     Route: 048
  8. NORVASC [Concomitant]
     Active Substance: AMLODIPINE BESYLATE
     Dosage: 5 MG, DAILY
     Route: 048
  9. ARIMIDEX [Concomitant]
     Active Substance: ANASTROZOLE
     Indication: BREAST CANCER METASTATIC
     Dosage: 1 MG, DAILY
     Route: 048
  10. ANORO ELLIPTA [Concomitant]
     Active Substance: UMECLIDINIUM BROMIDE\VILANTEROL TRIFENATATE
     Dosage: UNK, DAILY(INHALE 1 PUFF DAILY)
  11. POTASSIUM CHLORIDE. [Concomitant]
     Active Substance: POTASSIUM CHLORIDE
     Dosage: 10 MEQ, DAILY
     Route: 048
  12. MIACALCIN [Concomitant]
     Active Substance: CALCITONIN SALMON
     Dosage: 1 DF, DAILY (ADMINISTER 1 SPRAY INTO ONE NOSTRIL DAILY)
     Dates: start: 20200516
  13. IBRANCE [Suspect]
     Active Substance: PALBOCICLIB
     Dosage: 125 MG, CYCLIC (1-21 OF 28 DAY CYCLE)
     Route: 048
     Dates: start: 20200516
  14. ROXICODONE [Concomitant]
     Active Substance: OXYCODONE HYDROCHLORIDE
     Indication: PAIN
     Dosage: 5 MG, AS NEEDED(5 MG Q 4 P.R.N.)
     Route: 048
  15. ALBUTEROL SULFATE. [Concomitant]
     Active Substance: ALBUTEROL SULFATE
     Indication: DYSPNOEA
     Dosage: UNK, AS NEEDED(INHALE 1-2 PUFFS EVERY 6 HOURS AS NEEDED)
     Route: 055

REACTIONS (26)
  - Encephalopathy [Unknown]
  - Malnutrition [Unknown]
  - Fatigue [Not Recovered/Not Resolved]
  - Dry skin [Unknown]
  - Renal cyst [Unknown]
  - Cancer pain [Unknown]
  - White blood cell count decreased [Unknown]
  - Oxygen saturation decreased [Unknown]
  - Acute respiratory failure [Unknown]
  - Cardiac failure congestive [Unknown]
  - Claustrophobia [Unknown]
  - Pulmonary oedema [Unknown]
  - Neoplasm progression [Unknown]
  - Atelectasis [Unknown]
  - Bronchial carcinoma [Unknown]
  - Malignant ascites [Unknown]
  - Red blood cell count decreased [Unknown]
  - Dehydration [Unknown]
  - Failure to thrive [Unknown]
  - Spinal compression fracture [Unknown]
  - Second primary malignancy [Unknown]
  - Back pain [Recovering/Resolving]
  - Skin warm [Unknown]
  - Arteriosclerosis coronary artery [Unknown]
  - Streptococcal urinary tract infection [Unknown]
  - Pleural effusion [Unknown]

NARRATIVE: CASE EVENT DATE: 201912
